FAERS Safety Report 10186221 (Version 2)
Quarter: 2014Q2

REPORT INFORMATION
  Report Type: Spontaneous
  Country: JP (occurrence: JP)
  Receive Date: 20140521
  Receipt Date: 20140530
  Transmission Date: 20141212
  Serious: Yes (Death)
  Sender: FDA-Public Use
  Company Number: JP-GLAXOSMITHKLINE-B0989104A

PATIENT
  Age: 66 Year
  Sex: Male

DRUGS (1)
  1. VALTREX [Suspect]
     Indication: OPHTHALMIC HERPES SIMPLEX
     Route: 048
     Dates: start: 20140421

REACTIONS (1)
  - Encephalopathy [Fatal]
